FAERS Safety Report 8448345-2 (Version None)
Quarter: 2012Q2

REPORT INFORMATION
  Report Type: 
  Country: None (occurrence: None)
  Receive Date: 20120531
  Receipt Date: 20120524
  Transmission Date: 20120825
  Serious: Yes (Other)
  Sender: FDA-Public Use
  Company Number: 2012032454

PATIENT
  Age: 30 Year
  Sex: Female

DRUGS (1)
  1. HIZENTRA [Suspect]
     Indication: PRIMARY IMMUNODEFICIENCY SYNDROME
     Dosage: SUBCUTANEOUS
     Route: 058

REACTIONS (2)
  - KIDNEY INFECTION [None]
  - HAEMORRHAGE [None]
